FAERS Safety Report 7197231-7 (Version None)
Quarter: 2010Q4

REPORT INFORMATION
  Report Type: 
  Country: None (occurrence: None)
  Receive Date: 20101224
  Receipt Date: 20101222
  Transmission Date: 20110411
  Serious: Yes (Other)
  Sender: FDA-Public Use
  Company Number: US-BRISTOL-MYERS SQUIBB COMPANY-15456577

PATIENT
  Age: 52 Year
  Sex: Female

DRUGS (1)
  1. AVAPRO [Suspect]
     Dosage: DOSE DECREASED TO 75MG QD FOR UNKNOWN REASON.

REACTIONS (1)
  - LAPAROSCOPIC SURGERY [None]
